FAERS Safety Report 15013850 (Version 6)
Quarter: 2019Q2

REPORT INFORMATION
  Report Type: Report from Study
  Country: JP (occurrence: JP)
  Receive Date: 20180614
  Receipt Date: 20190520
  Transmission Date: 20190711
  Serious: Yes (Other)
  Sender: FDA-Public Use
  Company Number: JP-AMGEN-JPNNI2018080544

PATIENT
  Age: 81 Year
  Sex: Female

DRUGS (22)
  1. DARBEPOETIN ALFA [Suspect]
     Active Substance: DARBEPOETIN ALFA
     Dosage: 240 MICROGRAM, QWK
     Route: 058
     Dates: start: 20170831, end: 20170908
  2. METILDIGOXIN [Concomitant]
     Active Substance: METILDIGOXIN
     Indication: ATRIAL FIBRILLATION
     Dosage: 0.1 MILLIGRAM
     Route: 048
     Dates: end: 20171106
  3. CYMBALTA [Concomitant]
     Active Substance: DULOXETINE HYDROCHLORIDE
     Indication: LUMBAR SPINAL STENOSIS
  4. LYRICA [Concomitant]
     Active Substance: PREGABALIN
     Indication: CERVICAL SPINAL STENOSIS
     Dosage: 150 MILLIGRAM
     Route: 048
     Dates: end: 20171106
  5. DARBEPOETIN ALFA [Suspect]
     Active Substance: DARBEPOETIN ALFA
     Dosage: 240 MICROGRAM, QWK
     Route: 058
     Dates: start: 20170106, end: 20170224
  6. DARBEPOETIN ALFA [Suspect]
     Active Substance: DARBEPOETIN ALFA
     Dosage: 240 MICROGRAM, Q3WK
     Route: 058
     Dates: start: 20170428, end: 20170519
  7. AZOSEMIDE [Concomitant]
     Active Substance: AZOSEMIDE
     Indication: MITRAL VALVE INCOMPETENCE
     Dosage: 30 MILLIGRAM
     Route: 048
     Dates: end: 20171106
  8. ETODOLAC. [Concomitant]
     Active Substance: ETODOLAC
     Indication: LUMBAR SPINAL STENOSIS
  9. DARBEPOETIN ALFA [Suspect]
     Active Substance: DARBEPOETIN ALFA
     Indication: MYELODYSPLASTIC SYNDROME
     Dosage: 240 MICROGRAM, QWK
     Route: 058
     Dates: start: 20160826, end: 20161228
  10. DARBEPOETIN ALFA [Suspect]
     Active Substance: DARBEPOETIN ALFA
     Dosage: 240 MICROGRAM, Q2WK
     Route: 058
     Dates: start: 20170310, end: 20170421
  11. FAMOTIDINE. [Concomitant]
     Active Substance: FAMOTIDINE
     Indication: CHRONIC GASTRITIS
     Dosage: 20 MILLIGRAM
     Route: 048
     Dates: end: 20171106
  12. DARBEPOETIN ALFA [Suspect]
     Active Substance: DARBEPOETIN ALFA
     Dosage: 240 MICROGRAM, Q2WK
     Route: 058
     Dates: start: 20170526, end: 20170721
  13. MOSAPRIDE CITRATE [Concomitant]
     Active Substance: MOSAPRIDE CITRATE
     Indication: CHRONIC GASTRITIS
     Dosage: 10 MILLIGRAM
     Route: 048
     Dates: end: 20171106
  14. CARVEDILOL. [Concomitant]
     Active Substance: CARVEDILOL
     Indication: MITRAL VALVE INCOMPETENCE
     Dosage: 2.5 MILLIGRAM
     Route: 048
     Dates: end: 20171106
  15. ETODOLAC. [Concomitant]
     Active Substance: ETODOLAC
     Indication: CERVICAL SPINAL STENOSIS
     Dosage: 400 MILLIGRAM
     Route: 048
     Dates: end: 20171106
  16. DARBEPOETIN ALFA [Suspect]
     Active Substance: DARBEPOETIN ALFA
     Dosage: 240 MICROGRAM, QD
     Route: 058
     Dates: start: 20170818, end: 20170818
  17. DARBEPOETIN ALFA [Suspect]
     Active Substance: DARBEPOETIN ALFA
     Dosage: 240 MICROGRAM, Q2WK
     Route: 058
     Dates: start: 20170929
  18. BETANIS [Concomitant]
     Active Substance: MIRABEGRON
     Indication: HYPERTONIC BLADDER
     Dosage: 50 MILLIGRAM
     Route: 048
     Dates: end: 20171106
  19. LYRICA [Concomitant]
     Active Substance: PREGABALIN
     Indication: LUMBAR SPINAL STENOSIS
  20. VALSARTAN/AMLODIPINO [Concomitant]
     Active Substance: AMLODIPINE\VALSARTAN
     Indication: HYPERTENSION
     Dosage: 1 DOSAGE FORM
     Route: 048
     Dates: end: 20171106
  21. CYMBALTA [Concomitant]
     Active Substance: DULOXETINE HYDROCHLORIDE
     Indication: CERVICAL SPINAL STENOSIS
     Dosage: 20 MILLIGRAM
     Route: 048
     Dates: end: 20171106
  22. WARFARIN [Concomitant]
     Active Substance: WARFARIN
     Indication: ATRIAL FIBRILLATION
     Dosage: 2 MILLIGRAM
     Route: 048
     Dates: end: 20171106

REACTIONS (2)
  - Hyperuricaemia [Not Recovered/Not Resolved]
  - Lymphoma [Recovering/Resolving]

NARRATIVE: CASE EVENT DATE: 201702
